FAERS Safety Report 17423516 (Version 1)
Quarter: 2020Q1

REPORT INFORMATION
  Report Type: Spontaneous
  Country: US (occurrence: US)
  Receive Date: 20200217
  Receipt Date: 20200217
  Transmission Date: 20200409
  Serious: No
  Sender: FDA-Public Use
  Company Number: US-B.I. PHARMACEUTICALS,INC./RIDGEFIELD-2020-US-007767

PATIENT
  Sex: Female

DRUGS (1)
  1. JARDIANCE [Suspect]
     Active Substance: EMPAGLIFLOZIN
     Indication: PRODUCT USED FOR UNKNOWN INDICATION
     Dosage: 25MG ONCE A DAY
     Route: 065
     Dates: start: 2019, end: 2019

REACTIONS (3)
  - Dysuria [Recovered/Resolved]
  - Haematuria [Recovered/Resolved]
  - Genital infection female [Recovered/Resolved]

NARRATIVE: CASE EVENT DATE: 2019
